FAERS Safety Report 14411602 (Version 1)
Quarter: 2018Q1

REPORT INFORMATION
  Report Type: Spontaneous
  Country: US (occurrence: US)
  Receive Date: 20180117
  Receipt Date: 20180117
  Transmission Date: 20180509
  Serious: No
  Sender: FDA-Public Use
  Company Number: None

PATIENT
  Age: 64 Year
  Sex: Female

DRUGS (33)
  1. XELJANZ [Suspect]
     Active Substance: TOFACITINIB CITRATE
     Indication: RHEUMATOID ARTHRITIS
     Route: 048
     Dates: start: 20170803
  2. CYCLOBENZAPR [Concomitant]
     Active Substance: CYCLOBENZAPRINE
  3. NORCO [Concomitant]
     Active Substance: ACETAMINOPHEN\HYDROCODONE BITARTRATE
  4. PROVENTIL HFA [Concomitant]
     Active Substance: ALBUTEROL SULFATE
  5. SINGULAIR [Concomitant]
     Active Substance: MONTELUKAST SODIUM
  6. BRUSH VIT C L02 [Concomitant]
  7. TUDORZA PRES AER [Concomitant]
  8. FINACEA [Concomitant]
     Active Substance: AZELAIC ACID
  9. LIALDA [Concomitant]
     Active Substance: MESALAMINE
  10. PANOPRAZOLE [Concomitant]
  11. RALOXIFENE. [Concomitant]
     Active Substance: RALOXIFENE
  12. TRAMADOL HCL [Concomitant]
     Active Substance: TRAMADOL HYDROCHLORIDE
  13. DICLOFENAC [Concomitant]
     Active Substance: DICLOFENAC
  14. MONTELUKAST [Concomitant]
     Active Substance: MONTELUKAST SODIUM
  15. PLAVIX [Concomitant]
     Active Substance: CLOPIDOGREL BISULFATE
  16. RESVERAROL [Concomitant]
  17. HYDROXYCHLOR [Concomitant]
     Active Substance: HYDROXYCHLOROQUINE
  18. PHAZYME CHEW [Concomitant]
  19. VENTOLIN HFA AER [Concomitant]
  20. EPIPEN [Concomitant]
     Active Substance: EPINEPHRINE
  21. EVISTA [Concomitant]
     Active Substance: RALOXIFENE HYDROCHLORIDE
  22. FISH OIL [Concomitant]
     Active Substance: FISH OIL
  23. SELENIUM [Concomitant]
     Active Substance: SELENIUM
  24. SUCRALFATE. [Concomitant]
     Active Substance: SUCRALFATE
  25. TURMERIC [Concomitant]
     Active Substance: HERBALS\TURMERIC
  26. CAL CIT-D3 [Concomitant]
  27. GAVISCON [Concomitant]
     Active Substance: ALUMINUM HYDROXIDE\MAGNESIUM CARBONATE
  28. MULTIVITAMIN [Concomitant]
     Active Substance: VITAMINS
  29. WAL-ZYR (CETIRIZINE HYDROCHLORIDE) [Concomitant]
     Active Substance: CETIRIZINE HYDROCHLORIDE
  30. ESTRACE [Concomitant]
     Active Substance: ESTRADIOL
  31. FLUTICASONE. [Concomitant]
     Active Substance: FLUTICASONE
  32. GUAIFENESIN SOL [Concomitant]
  33. PSEUDOEPHEDR [Concomitant]

REACTIONS (2)
  - Knee operation [None]
  - Procedural pain [None]
